FAERS Safety Report 16712604 (Version 2)
Quarter: 2019Q3

REPORT INFORMATION
  Report Type: Spontaneous
  Country: DE (occurrence: DE)
  Receive Date: 20190816
  Receipt Date: 20190917
  Transmission Date: 20191004
  Serious: Yes (Other)
  Sender: FDA-Public Use
  Company Number: PHHY2019DE191188

PATIENT
  Age: 74 Year
  Sex: Male

DRUGS (2)
  1. AMOXI 1A PHARMA [Suspect]
     Active Substance: AMOXICILLIN
     Indication: INFLAMMATION
     Dosage: 3 DF, QD
     Route: 065
  2. AMOXI 1A PHARMA [Suspect]
     Active Substance: AMOXICILLIN
     Indication: ARTHROPOD BITE

REACTIONS (3)
  - Respiratory depression [Unknown]
  - Restlessness [Unknown]
  - Nervousness [Unknown]

NARRATIVE: CASE EVENT DATE: 20190811
